FAERS Safety Report 11563386 (Version 2)
Quarter: 2015Q4

REPORT INFORMATION
  Report Type: Report from Study
  Country: JP (occurrence: JP)
  Receive Date: 20150928
  Receipt Date: 20151126
  Transmission Date: 20160304
  Serious: Yes (Hospitalization)
  Sender: FDA-Public Use
  Company Number: JP-ASTRAZENECA-2015SE93322

PATIENT
  Age: 22823 Day
  Sex: Female
  Weight: 59 kg

DRUGS (12)
  1. ONGLYZA [Suspect]
     Active Substance: SAXAGLIPTIN HYDROCHLORIDE
     Indication: TYPE 2 DIABETES MELLITUS
     Dosage: OPEN LABLE STUDY THERAPY: BEFORE BREAKFAST, 5MG DAILY
     Route: 048
     Dates: start: 20150219, end: 20150916
  2. ISOBIDE ISOSORBIDE [Concomitant]
     Indication: DEAFNESS
     Route: 048
     Dates: start: 20150509
  3. EPALRESTAT [Concomitant]
     Active Substance: EPALRESTAT
     Indication: DIABETIC AUTONOMIC NEUROPATHY
     Route: 048
  4. KALLIDINOGENASE [Concomitant]
     Active Substance: KALLIDINOGENASE
     Indication: DEAFNESS
     Route: 048
  5. FUROSEMIDE. [Concomitant]
     Active Substance: FUROSEMIDE
     Indication: HYPERTENSION
     Route: 048
     Dates: start: 20150812
  6. ONGLYZA [Suspect]
     Active Substance: SAXAGLIPTIN HYDROCHLORIDE
     Indication: TYPE 2 DIABETES MELLITUS
     Dosage: BLINDED STUDY THERAPY: PLACEBO ADMINISTERED ONCE DAILY BEFORE BREAKFAST.
     Route: 048
     Dates: start: 20141030
  7. METHYCOBAL [Concomitant]
     Active Substance: METHYLCOBALAMIN
     Route: 048
  8. LOTRIGA,OMEGA-3-ACID ETHYL ESTERS [Concomitant]
     Indication: DYSLIPIDAEMIA
     Route: 048
     Dates: start: 20150812
  9. INSULIN [Suspect]
     Active Substance: INSULIN NOS
     Indication: TYPE 2 DIABETES MELLITUS
     Route: 065
  10. TRINOSIN [Concomitant]
     Active Substance: ADENOSINE TRIPHOSPHATE DISODIUM
     Route: 048
  11. MICARDIS [Concomitant]
     Active Substance: TELMISARTAN
     Indication: HYPERTENSION
     Route: 048
     Dates: start: 20141224
  12. HUMALOG MIX [Concomitant]
     Active Substance: INSULIN LISPRO
     Route: 058
     Dates: end: 20150916

REACTIONS (1)
  - Meniere^s disease [Recovering/Resolving]

NARRATIVE: CASE EVENT DATE: 20150916
